FAERS Safety Report 9733245 (Version 1)
Quarter: 2013Q4

REPORT INFORMATION
  Report Type: Spontaneous
  Country: US (occurrence: US)
  Receive Date: 20131205
  Receipt Date: 20131205
  Transmission Date: 20140711
  Serious: No
  Sender: FDA-Public Use
  Company Number: US-PFIZER INC-2013347037

PATIENT
  Age: 31 Year
  Sex: Male
  Weight: 61.68 kg

DRUGS (1)
  1. GABAPENTIN [Suspect]
     Dosage: 100 MG, 3X/DAY
     Route: 048
     Dates: start: 20131130

REACTIONS (5)
  - Abdominal discomfort [Unknown]
  - Dyspepsia [Unknown]
  - Hyperchlorhydria [Unknown]
  - Nausea [Unknown]
  - Back pain [Unknown]
